FAERS Safety Report 16285153 (Version 1)
Quarter: 2019Q2

REPORT INFORMATION
  Report Type: Spontaneous
  Country: US (occurrence: US)
  Receive Date: 20190508
  Receipt Date: 20190508
  Transmission Date: 20190711
  Serious: Yes (Other)
  Sender: FDA-Public Use
  Company Number: US-ALKEM LABORATORIES LIMITED-US-ALKEM-2019-03992

PATIENT
  Sex: Female

DRUGS (2)
  1. CYCLOBENZAPRINE. [Concomitant]
     Active Substance: CYCLOBENZAPRINE
     Indication: ABDOMINAL PAIN
     Dosage: UNK
     Route: 065
  2. OXYCODONE HYDROCHLORIDE. [Suspect]
     Active Substance: OXYCODONE HYDROCHLORIDE
     Indication: ABDOMINAL PAIN
     Dosage: UNK
     Route: 065

REACTIONS (7)
  - Shock [Unknown]
  - Rhabdomyolysis [Unknown]
  - Renal tubular necrosis [Unknown]
  - Respiratory depression [Unknown]
  - Ischaemic hepatitis [Unknown]
  - Hypoxia [Unknown]
  - Cardiomyopathy [Unknown]
